FAERS Safety Report 15886829 (Version 2)
Quarter: 2019Q3

REPORT INFORMATION
  Report Type: Spontaneous
  Country: US (occurrence: US)
  Receive Date: 20190129
  Receipt Date: 20190723
  Transmission Date: 20191004
  Serious: Yes (Other)
  Sender: FDA-Public Use
  Company Number: US-SUN PHARMACEUTICAL INDUSTRIES LTD-2019R1-197442

PATIENT
  Age: 33 Year
  Sex: Male

DRUGS (2)
  1. KILLER BEE^S FAT BURNER (T3 CONTAINING FOOD SUPPLEMENT) [Suspect]
     Active Substance: LIOTHYRONINE
     Indication: SUPPLEMENTATION THERAPY
     Dosage: UNK
     Route: 065
  2. KILLER BEE^S FAT BURNER [DIETARY SUPPLEMENT] [Suspect]
     Active Substance: DIETARY SUPPLEMENT

REACTIONS (1)
  - Thyrotoxic periodic paralysis [Recovering/Resolving]
